FAERS Safety Report 7555403-3 (Version None)
Quarter: 2011Q2

REPORT INFORMATION
  Report Type: 
  Country: None (occurrence: None)
  Receive Date: 20110617
  Receipt Date: 20110607
  Transmission Date: 20111010
  Serious: Yes (Hospitalization, Other)
  Sender: FDA-Public Use
  Company Number: US-PFIZER INC-2011122305

PATIENT
  Age: 79 Year
  Sex: Male

DRUGS (6)
  1. QUETIAPINE [Suspect]
     Indication: DELUSION
  2. QUETIAPINE [Suspect]
     Indication: AGITATION
     Dosage: 12.5 MG, 2X/DAY
  3. MIRTAZAPINE [Suspect]
     Indication: SLEEP DISORDER
     Dosage: 30 MG, DAILY
  4. DONEPEZIL [Concomitant]
     Indication: DEMENTIA
     Dosage: 10 MG, DAILY
  5. VENLAFAXINE HCL [Suspect]
     Dosage: 225 MG, DAILY
  6. VENLAFAXINE HCL [Suspect]
     Dosage: 75 MG, DAILY

REACTIONS (3)
  - SEROTONIN SYNDROME [None]
  - SOCIAL AVOIDANT BEHAVIOUR [None]
  - DEPRESSED MOOD [None]
